FAERS Safety Report 14254758 (Version 1)
Quarter: 2017Q4

REPORT INFORMATION
  Report Type: Spontaneous
  Country: US (occurrence: US)
  Receive Date: 20171206
  Receipt Date: 20171206
  Transmission Date: 20180321
  Serious: No
  Sender: FDA-Public Use
  Company Number: US-PFIZER INC-2017518110

PATIENT
  Age: 63 Year
  Sex: Female
  Weight: 70 kg

DRUGS (18)
  1. DOCETAXEL. [Suspect]
     Active Substance: DOCETAXEL
     Indication: INVASIVE DUCTAL BREAST CARCINOMA
  2. TAXOTERE [Suspect]
     Active Substance: DOCETAXEL
     Indication: CHEMOTHERAPY
     Dosage: 75 MG/M2, EVERY 3 WEEKS, SIX CYCLES
     Dates: start: 20110301, end: 20110614
  3. DOCETAXEL. [Suspect]
     Active Substance: DOCETAXEL
     Indication: CHEMOTHERAPY
     Dosage: 75 MG/M2, EVERY 3 WEEKS, SIX CYCLES
     Dates: start: 20110301, end: 20110614
  4. DOCETAXEL. [Suspect]
     Active Substance: DOCETAXEL
     Indication: INVASIVE DUCTAL BREAST CARCINOMA
  5. DOCETAXEL. [Suspect]
     Active Substance: DOCETAXEL
     Indication: INVASIVE DUCTAL BREAST CARCINOMA
  6. NORVASC [Concomitant]
     Active Substance: AMLODIPINE BESYLATE
     Dosage: UNK
  7. DOCEFREZ [Suspect]
     Active Substance: DOCETAXEL ANHYDROUS
     Indication: CHEMOTHERAPY
     Dosage: 75 MG/M2, EVERY 3 WEEKS, SIX CYCLES
     Dates: start: 20110301, end: 20110614
  8. INSULIN [Concomitant]
     Active Substance: INSULIN NOS
     Dosage: UNK
     Dates: start: 19920101
  9. AMLODIPINE [Concomitant]
     Active Substance: AMLODIPINE BESYLATE
     Dosage: UNK
     Dates: start: 20040101
  10. DOCETAXEL. [Suspect]
     Active Substance: DOCETAXEL
     Indication: CHEMOTHERAPY
     Dosage: 75 MG/M2, EVERY 3 WEEKS, SIX CYCLES
     Dates: start: 20110301, end: 20110614
  11. TAXOTERE [Suspect]
     Active Substance: DOCETAXEL
     Indication: INVASIVE DUCTAL BREAST CARCINOMA
  12. DOCETAXEL. [Suspect]
     Active Substance: DOCETAXEL
     Indication: INVASIVE DUCTAL BREAST CARCINOMA
  13. DOCETAXEL. [Suspect]
     Active Substance: DOCETAXEL
     Indication: CHEMOTHERAPY
     Dosage: 75 MG/M2, EVERY 3 WEEKS, SIX CYCLES
     Dates: start: 20110301, end: 20110614
  14. DOCEFREZ [Suspect]
     Active Substance: DOCETAXEL ANHYDROUS
     Indication: INVASIVE DUCTAL BREAST CARCINOMA
  15. CARBOPLATIN. [Concomitant]
     Active Substance: CARBOPLATIN
     Indication: CHEMOTHERAPY
     Dosage: UNK, AUC 6
  16. DOCETAXEL. [Suspect]
     Active Substance: DOCETAXEL
     Indication: CHEMOTHERAPY
     Dosage: 75 MG/M2, EVERY 3 WEEKS, SIX CYCLES
     Dates: start: 20110301, end: 20110614
  17. PARAPLATIN [Concomitant]
     Active Substance: CARBOPLATIN
     Indication: CHEMOTHERAPY
     Dosage: UNK
  18. FEMARA [Concomitant]
     Active Substance: LETROZOLE
     Dosage: UNK
     Dates: start: 20110928

REACTIONS (7)
  - Depression [Unknown]
  - Hair disorder [Unknown]
  - Hair colour changes [Unknown]
  - Hair texture abnormal [Unknown]
  - Alopecia [Not Recovered/Not Resolved]
  - Madarosis [Unknown]
  - Depressed mood [Unknown]

NARRATIVE: CASE EVENT DATE: 20120301
